FAERS Safety Report 12350253 (Version 1)
Quarter: 2016Q2

REPORT INFORMATION
  Report Type: Spontaneous
  Country: US (occurrence: None)
  Receive Date: 20160509
  Receipt Date: 20160509
  Transmission Date: 20160815
  Serious: No
  Sender: FDA-Public Use
  Company Number: None

PATIENT
  Sex: Male

DRUGS (2)
  1. AVERNOL [Suspect]
     Active Substance: CARVEDILOL
  2. HUMALOG [Suspect]
     Active Substance: INSULIN LISPRO

REACTIONS (4)
  - Nasopharyngitis [None]
  - Multiple allergies [None]
  - Nasal congestion [None]
  - Cough [None]
